FAERS Safety Report 6694675-4 (Version None)
Quarter: 2010Q2

REPORT INFORMATION
  Report Type: 
  Country: None (occurrence: None)
  Receive Date: 20100423
  Receipt Date: 20100420
  Transmission Date: 20101027
  Serious: Yes (Death, Other)
  Sender: FDA-Public Use
  Company Number: NL-WYE-H14716410

PATIENT

DRUGS (1)
  1. GEMTUZUMAB OZOGAMICIN [Suspect]
     Indication: ACUTE MYELOID LEUKAEMIA
     Dosage: 6 MG/M^2 AT 4 WEEK INTERVALS; UP TO 3 CYCLES
     Route: 042

REACTIONS (1)
  - TREATMENT RELATED SECONDARY MALIGNANCY [None]
